FAERS Safety Report 23397783 (Version 2)
Quarter: 2024Q1

REPORT INFORMATION
  Report Type: Spontaneous
  Country: DE (occurrence: DE)
  Receive Date: 20240112
  Receipt Date: 20240125
  Transmission Date: 20240409
  Serious: Yes (Hospitalization, Other)
  Sender: FDA-Public Use
  Company Number: DE-BAXTER-2023BAX039368

PATIENT
  Age: 5 Year
  Sex: Male
  Weight: 19.9 kg

DRUGS (13)
  1. BESPONSA [Suspect]
     Active Substance: INOTUZUMAB OZOGAMICIN
     Indication: B-cell prolymphocytic leukaemia
     Dosage: 0.41 MG, ONCE
     Route: 042
     Dates: start: 20231107, end: 20231123
  2. METHOTREXATE SODIUM [Suspect]
     Active Substance: METHOTREXATE SODIUM
     Indication: B-cell prolymphocytic leukaemia
     Dosage: 12 MG, ONCE, FIRST REGIMEN
     Route: 037
     Dates: start: 20231205, end: 20231205
  3. METHOTREXATE SODIUM [Suspect]
     Active Substance: METHOTREXATE SODIUM
     Dosage: 810 MG, INFUSION OVER 36 HOURS, SECOND REGIMEN
     Dates: start: 20231206, end: 20231207
  4. CYTARABINE [Suspect]
     Active Substance: CYTARABINE
     Indication: B-cell prolymphocytic leukaemia
     Dosage: 30 MG, ONCE, FIRST REGIMEN
     Route: 037
     Dates: start: 20231205, end: 20231205
  5. CYTARABINE [Suspect]
     Active Substance: CYTARABINE
     Dosage: 1620 MG, TWICE DAILY, SECOND REGIMEN
     Route: 042
     Dates: start: 20231210, end: 20231210
  6. PEGASPARGASE [Suspect]
     Active Substance: PEGASPARGASE
     Indication: B-cell prolymphocytic leukaemia
     Dosage: 810 IU, ONCE
     Route: 042
     Dates: start: 20231211, end: 20231211
  7. DEXAMETHASONE [Suspect]
     Active Substance: DEXAMETHASONE
     Indication: B-cell prolymphocytic leukaemia
     Dosage: 2 MG, 2X/DAY
     Route: 048
     Dates: start: 20231205, end: 20231211
  8. CYCLOPHOSPHAMIDE [Suspect]
     Active Substance: CYCLOPHOSPHAMIDE
     Indication: B-cell prolymphocytic leukaemia
     Dosage: 162 MG, 5 DOSES ON DAY 2-DAY 4 OF PROTOCOL, INFUSION
     Route: 042
     Dates: start: 20231207, end: 20231209
  9. VINCRISTINE SULFATE [Suspect]
     Active Substance: VINCRISTINE SULFATE
     Indication: B-cell prolymphocytic leukaemia
     Dosage: 1.22 ON DAY 1 AND DAY 6
     Dates: start: 20231206, end: 20231211
  10. PREDNISOLONE [Suspect]
     Active Substance: PREDNISOLONE
     Indication: B-cell prolymphocytic leukaemia
     Dosage: 10 MG, SINGLE
     Route: 037
     Dates: start: 20231205, end: 20231205
  11. COTRIMOXAZOLE [Concomitant]
     Active Substance: SULFAMETHOXAZOLE\TRIMETHOPRIM
     Indication: Immunosuppression
     Dosage: UNK,
     Route: 048
     Dates: start: 202311
  12. AMBISOME [Concomitant]
     Active Substance: AMPHOTERICIN B
     Indication: Immunosuppression
     Dosage: UNK, ONGOING
     Dates: start: 20231102
  13. NOVALGIN (METAMIZOLE SODIUM) [Concomitant]
     Active Substance: METAMIZOLE SODIUM
     Dosage: UNK, ONGOING
     Route: 048
     Dates: start: 20231208

REACTIONS (5)
  - Myelosuppression [Unknown]
  - Mucosal inflammation [Recovered/Resolved]
  - Pyrexia [Recovered/Resolved]
  - Off label use [Unknown]
  - Off label use [Unknown]

NARRATIVE: CASE EVENT DATE: 20231116
